FAERS Safety Report 9277393 (Version 1)
Quarter: 2013Q2

REPORT INFORMATION
  Report Type: Spontaneous
  Country: US (occurrence: None)
  Receive Date: 20130507
  Receipt Date: 20130507
  Transmission Date: 20140414
  Serious: Yes (Death, Life-Threatening)
  Sender: FDA-Public Use
  Company Number: None

PATIENT
  Age: 13 Year
  Sex: Male
  Weight: 41.73 kg

DRUGS (1)
  1. DIAZEPAM [Suspect]
     Indication: INDUCTION OF ANAESTHESIA
     Dosage: .2 CC  ONCE  IV
     Route: 042
     Dates: start: 20130412

REACTIONS (4)
  - Procedural vomiting [None]
  - Urine output decreased [None]
  - Specific gravity urine decreased [None]
  - Unevaluable event [None]
